FAERS Safety Report 10370398 (Version 1)
Quarter: 2014Q1

REPORT INFORMATION
  Report Type: Spontaneous
  Country: US (occurrence: None)
  Receive Date: 20140306
  Receipt Date: 20140306
  Transmission Date: 20141002
  Serious: Yes (Other)
  Sender: FDA-Public Use
  Company Number: 163-21880-13084109

PATIENT
  Age: 57 Year
  Sex: Male
  Weight: 86.2 kg

DRUGS (20)
  1. REVLIMID [Suspect]
     Indication: PLASMA CELL MYELOMA
     Route: 048
     Dates: start: 20120124
  2. MS CONTIN [Concomitant]
  3. AMLODIPINE BESYLATE (AMLODIPINE BESILATE) [Concomitant]
  4. LANTUS SOLOSTAR [Concomitant]
  5. CARVEDILOL (UNKNOWN) [Concomitant]
  6. LISINOPRIL (TABLETS) (LISINOPRIL) [Concomitant]
  7. AMOXICILLIN (UNKNOWN) [Concomitant]
  8. SIMVASTATIN [Concomitant]
  9. METFORMIN HCL [Concomitant]
  10. NOVOLOG FLEXPEN [Concomitant]
  11. SENNA [Concomitant]
  12. CITRACAL [Concomitant]
  13. CALCIUM + D [Concomitant]
  14. FERROUS SULFATE (UNKNOWN) [Concomitant]
  15. HYDROCHLOROTHIAZIDE (UNKNOWN) [Concomitant]
  16. ZOMETA (ZOLEDRONIC ACID) (UNKNOWN) [Concomitant]
  17. ACYCLOVIR SODIUM [Concomitant]
  18. LORATADINE HIVES RELIEF (UNKNOWN) [Concomitant]
  19. NEXIUM [Concomitant]
  20. MEIJER JR STRENGTH ASPIRIN (ACETYLSALICYLIC ACID) (UNKNOWN) [Concomitant]

REACTIONS (3)
  - Platelet count decreased [None]
  - White blood cell count decreased [None]
  - Red blood cell count decreased [None]
